FAERS Safety Report 18966755 (Version 4)
Quarter: 2021Q3

REPORT INFORMATION
  Report Type: Spontaneous
  Country: JP (occurrence: JP)
  Receive Date: 20210303
  Receipt Date: 20210816
  Transmission Date: 20211014
  Serious: Yes (Death, Hospitalization, Other)
  Sender: FDA-Public Use
  Company Number: JP-009507513-2011JPN002198J

PATIENT
  Age: 68 Year
  Sex: Female
  Weight: 43 kg

DRUGS (12)
  1. BFLUID [Concomitant]
     Active Substance: AMINO ACIDS\DEXTROSE\ELECTROLYTES NOS\VITAMINS
     Indication: PROPHYLAXIS AGAINST DEHYDRATION
     Dosage: 1000 MILLILITER/DAY
     Route: 041
     Dates: start: 20200616
  2. DENOSUMAB [Concomitant]
     Active Substance: DENOSUMAB
     Route: 065
  3. LOXOPROFEN [LOXOPROFEN SODIUM] [Concomitant]
     Active Substance: LOXOPROFEN SODIUM
     Indication: CANCER PAIN
     Dosage: 180 MILLIGRAM/DAY
     Route: 048
     Dates: start: 20200610
  4. REBAMIPIDE [Concomitant]
     Active Substance: REBAMIPIDE
     Indication: GASTRITIS PROPHYLAXIS
     Dosage: 300 MILLIGRAM/DAY
     Route: 048
     Dates: start: 20200610
  5. OXYCODONE HYDROCHLORIDE. [Concomitant]
     Active Substance: OXYCODONE HYDROCHLORIDE
     Indication: CANCER PAIN
     Dosage: 600 MILLIGRAM/DAY
     Route: 041
     Dates: start: 20200628
  6. MOSAPRIDE CITRATE [Concomitant]
     Active Substance: MOSAPRIDE CITRATE
     Indication: DYSPEPSIA
     Dosage: 15 MILLIGRAM/DAY
     Route: 048
     Dates: start: 20200610
  7. RANMARK [Concomitant]
     Active Substance: DENOSUMAB
     Indication: OSTEOMA
     Dosage: 120 MILLIGRAM/W
     Route: 058
     Dates: start: 20200527
  8. DENOTAS [Concomitant]
     Active Substance: CALCIUM CARBONATE\CHOLECALCIFEROL\MAGNESIUM CARBONATE
     Indication: PROPHYLAXIS
     Dosage: 2 DOSAGE FORM/DAY
     Route: 048
     Dates: start: 20200610
  9. INLYTA [Concomitant]
     Active Substance: AXITINIB
     Indication: CLEAR CELL RENAL CELL CARCINOMA
     Dosage: 10 MILLIGRAM /DAY
     Route: 048
     Dates: start: 20200610
  10. CALONAL [Concomitant]
     Active Substance: ACETAMINOPHEN
     Indication: CANCER PAIN
     Dosage: 3000 MILLIGRAM/DAY
     Route: 048
     Dates: start: 20200610
  11. KEYTRUDA [Suspect]
     Active Substance: PEMBROLIZUMAB
     Indication: CLEAR CELL RENAL CELL CARCINOMA
     Dosage: 200 MILLIGRAM, Q3W
     Route: 041
     Dates: start: 20200610, end: 20200610
  12. INLYTA [Concomitant]
     Active Substance: AXITINIB
     Dosage: UNK
     Route: 048
     Dates: start: 20200625

REACTIONS (8)
  - Nausea [Unknown]
  - Malignant neoplasm progression [Fatal]
  - Nephropathy toxic [Unknown]
  - Constipation [Unknown]
  - Chronic gastritis [Unknown]
  - Urinary tract infection [Unknown]
  - Sjogren^s syndrome [Unknown]
  - Myocarditis [Recovered/Resolved]

NARRATIVE: CASE EVENT DATE: 20200610
